FAERS Safety Report 15315068 (Version 1)
Quarter: 2018Q3

REPORT INFORMATION
  Report Type: Spontaneous
  Country: US (occurrence: US)
  Receive Date: 20180815
  Receipt Date: 20180815
  Transmission Date: 20181010
  Serious: Yes (Death)
  Sender: FDA-Public Use
  Company Number: None

PATIENT
  Age: 21 Year
  Sex: Male

DRUGS (1)
  1. ETOPOSIDE. [Suspect]
     Active Substance: ETOPOSIDE
     Indication: METASTASES TO LUNG
     Dosage: ?          OTHER FREQUENCY:DAILY MON?FRI;?
     Route: 048
     Dates: start: 20180111, end: 20180321

REACTIONS (1)
  - Death [None]

NARRATIVE: CASE EVENT DATE: 20180321
